FAERS Safety Report 9307973 (Version 3)
Quarter: 2014Q1

REPORT INFORMATION
  Report Type: Spontaneous
  Country: PT (occurrence: PT)
  Receive Date: 20130524
  Receipt Date: 20140131
  Transmission Date: 20141002
  Serious: Yes (Hospitalization, Other)
  Sender: FDA-Public Use
  Company Number: PT-ROCHE-1228139

PATIENT
  Age: 38 Year
  Sex: Female

DRUGS (3)
  1. ROACTEMRA [Suspect]
     Indication: JUVENILE IDIOPATHIC ARTHRITIS
     Route: 042
     Dates: start: 20130124, end: 20130429
  2. LEDERTREXATE /00113801/ [Suspect]
     Indication: JUVENILE IDIOPATHIC ARTHRITIS
     Route: 048
     Dates: start: 201201, end: 201203
  3. LEDERTREXATE /00113801/ [Suspect]
     Route: 048
     Dates: start: 201203, end: 20130510

REACTIONS (4)
  - Interstitial lung disease [Recovered/Resolved]
  - Leukopenia [Recovered/Resolved]
  - Lymphopenia [Recovered/Resolved]
  - Alveolitis allergic [Unknown]
